FAERS Safety Report 16628532 (Version 4)
Quarter: 2021Q4

REPORT INFORMATION
  Report Type: Spontaneous
  Country: FR (occurrence: FR)
  Receive Date: 20190725
  Receipt Date: 20211105
  Transmission Date: 20220304
  Serious: Yes (Disabling, Other)
  Sender: FDA-Public Use
  Company Number: None

PATIENT
  Age: 45 Year
  Sex: Female

DRUGS (3)
  1. ENBREL [Suspect]
     Active Substance: ETANERCEPT
     Indication: Ankylosing spondylitis
     Dosage: 1 DF, EVERY 3 WEEKS
     Route: 058
     Dates: start: 20150709, end: 201905
  2. ATENOLOL [Concomitant]
     Active Substance: ATENOLOL
     Dosage: UNK
  3. VALSARTAN [Concomitant]
     Active Substance: VALSARTAN
     Dosage: UNK

REACTIONS (3)
  - Gait disturbance [Recovered/Resolved with Sequelae]
  - Off label use [Unknown]
  - Pyramidal tract syndrome [Recovered/Resolved with Sequelae]

NARRATIVE: CASE EVENT DATE: 20150709
